FAERS Safety Report 16730649 (Version 3)
Quarter: 2019Q3

REPORT INFORMATION
  Report Type: Spontaneous
  Country: JP (occurrence: JP)
  Receive Date: 20190822
  Receipt Date: 20190924
  Transmission Date: 20191005
  Serious: Yes (Hospitalization)
  Sender: FDA-Public Use
  Company Number: JP-GILEAD-2019-0419981

PATIENT
  Age: 3 Year
  Sex: Female

DRUGS (2)
  1. AMBRISENTAN [Suspect]
     Active Substance: AMBRISENTAN
     Dosage: 0.625 MG, BID, AFTER BREAKFAST AND DINNER
     Route: 048
     Dates: start: 20190222
  2. AMBRISENTAN [Suspect]
     Active Substance: AMBRISENTAN
     Indication: PRODUCT USED FOR UNKNOWN INDICATION
     Dosage: 0.625 MG, BID, AFTER BREAKFAST AND DINNER
     Route: 048
     Dates: start: 20190228

REACTIONS (4)
  - Pyrexia [Recovered/Resolved]
  - Dysphagia [Recovered/Resolved]
  - Off label use [Unknown]
  - Influenza [Recovered/Resolved]

NARRATIVE: CASE EVENT DATE: 20190219
